FAERS Safety Report 5026204-5 (Version None)
Quarter: 2006Q2

REPORT INFORMATION
  Report Type: 
  Country: None (occurrence: None)
  Receive Date: 20060608
  Receipt Date: 20060530
  Transmission Date: 20061013
  Serious: Yes (Hospitalization)
  Sender: FDA-Public Use
  Company Number: 2006BI002769

PATIENT
  Age: 40 Year
  Sex: Male

DRUGS (3)
  1. AVONEX [Suspect]
     Indication: RELAPSING-REMITTING MULTIPLE SCLEROSIS
     Dosage: 30 UG;QW;IM
     Route: 030
     Dates: start: 20050507, end: 20060211
  2. AMANTADINE HCL [Concomitant]
  3. AMITRIPTYLINE HCL [Concomitant]

REACTIONS (7)
  - ANXIETY [None]
  - CONFUSIONAL STATE [None]
  - DELUSION [None]
  - DEPRESSION [None]
  - DRUG INTERACTION [None]
  - HALLUCINATION [None]
  - SUICIDAL IDEATION [None]
